FAERS Safety Report 6618238-1 (Version None)
Quarter: 2010Q1

REPORT INFORMATION
  Report Type: 
  Country: None (occurrence: None)
  Receive Date: 20100308
  Receipt Date: 20100222
  Transmission Date: 20100710
  Serious: Yes (Hospitalization)
  Sender: FDA-Public Use
  Company Number: US-ROCHE-689219

PATIENT
  Age: 56 Year

DRUGS (2)
  1. TRASTUZUMAB [Suspect]
     Indication: BREAST CANCER
     Dosage: ROUTE AS PER PROTOCOL,  DATE OF MOST RECENT DOSE: 23 APRIL 2009
     Route: 042
  2. BEVACIZUMAB [Suspect]
     Indication: BREAST CANCER
     Dosage: ROUTE AS PER PROTOCOL
     Route: 042

REACTIONS (1)
  - DEHYDRATION [None]
